FAERS Safety Report 18799927 (Version 1)
Quarter: 2021Q1

REPORT INFORMATION
  Report Type: Spontaneous
  Country: JP (occurrence: JP)
  Receive Date: 20210128
  Receipt Date: 20210128
  Transmission Date: 20210419
  Serious: Yes (Other)
  Sender: FDA-Public Use
  Company Number: JP-ASTRAZENECA-2021A011899

PATIENT
  Age: 42 Year
  Sex: Male

DRUGS (37)
  1. RISPERIDONE. [Concomitant]
     Active Substance: RISPERIDONE
     Indication: CATATONIA
     Route: 065
  2. RISPERIDONE. [Concomitant]
     Active Substance: RISPERIDONE
     Indication: SCHIZOPHRENIA
     Dosage: 25 MG/DAY, UNKNOWN FREQ
     Route: 065
  3. RISPERIDONE. [Concomitant]
     Active Substance: RISPERIDONE
     Indication: SCHIZOPHRENIA
     Dosage: UNK UNK, UNKNOWN FREQ.
     Route: 065
  4. QUETIAPINE. [Suspect]
     Active Substance: QUETIAPINE
     Indication: SCHIZOPHRENIA
     Route: 065
  5. PALIPERIDONE. [Concomitant]
     Active Substance: PALIPERIDONE
     Indication: SCHIZOPHRENIA
     Dosage: UNK UNK, UNKNOWN FREQ.
     Route: 048
  6. CLOXAZOLAM [Concomitant]
     Active Substance: CLOXAZOLAM
     Indication: PRODUCT USED FOR UNKNOWN INDICATION
     Dosage: 6 MG/DAY, UNKNOWN FREQ.
     Route: 065
  7. LITHIUM CARBONATE. [Concomitant]
     Active Substance: LITHIUM CARBONATE
     Indication: SCHIZOPHRENIA
     Dosage: 400 MG/DAY, UNKNOWN FREQ.
     Route: 048
  8. SODIUM VALPROATE [Concomitant]
     Active Substance: VALPROATE SODIUM
     Indication: SCHIZOPHRENIA
     Dosage: 1000 MG/DAY, UNKNOWN FREQ.
     Route: 048
  9. RISPERIDONE. [Concomitant]
     Active Substance: RISPERIDONE
     Indication: SCHIZOPHRENIA
     Route: 065
  10. RISPERIDONE. [Concomitant]
     Active Substance: RISPERIDONE
     Indication: CATATONIA
     Dosage: 25 MG/DAY, UNKNOWN FREQ
     Route: 065
  11. RISPERIDONE. [Concomitant]
     Active Substance: RISPERIDONE
     Indication: CATATONIA
     Dosage: 25 MG/DAY, UNKNOWN FREQ
     Route: 065
  12. RISPERIDONE. [Concomitant]
     Active Substance: RISPERIDONE
     Indication: CATATONIA
     Dosage: UNK UNK, UNKNOWN FREQ
     Route: 048
  13. RISPERIDONE. [Concomitant]
     Active Substance: RISPERIDONE
     Indication: SCHIZOPHRENIA
     Dosage: UNK UNK, UNKNOWN FREQ
     Route: 065
  14. PALIPERIDONE. [Concomitant]
     Active Substance: PALIPERIDONE
     Indication: SCHIZOPHRENIA
     Dosage: 12 MG/DAY, UNKNOWN FREQ.
     Route: 048
  15. RISPERIDONE. [Concomitant]
     Active Substance: RISPERIDONE
     Indication: SCHIZOPHRENIA
     Dosage: UNK UNK, UNKNOWN FREQ.
     Route: 065
  16. RISPERIDONE. [Concomitant]
     Active Substance: RISPERIDONE
     Indication: CATATONIA
     Dosage: UNK UNK, UNKNOWN FREQ
     Route: 065
  17. RISPERIDONE. [Concomitant]
     Active Substance: RISPERIDONE
     Indication: SCHIZOPHRENIA
     Dosage: UNK UNK, UNKNOWN FREQ
     Route: 048
  18. RISPERIDONE. [Concomitant]
     Active Substance: RISPERIDONE
     Indication: CATATONIA
     Dosage: UNK UNK, UNKNOWN FREQ
     Route: 048
  19. SULTOPRIDE HYDROCHLORIDE [Concomitant]
     Active Substance: SULTOPRIDE HYDROCHLORIDE
     Indication: SCHIZOPHRENIA
     Dosage: 800 MG/DAY, UNKNOWN FREQ.
     Route: 048
  20. SULTOPRIDE HYDROCHLORIDE [Concomitant]
     Active Substance: SULTOPRIDE HYDROCHLORIDE
     Indication: SCHIZOPHRENIA
     Dosage: UNK UNK, UNKNOWN FREQ.
     Route: 048
  21. RISPERIDONE. [Concomitant]
     Active Substance: RISPERIDONE
     Indication: CATATONIA
     Dosage: UNK UNK, UNKNOWN FREQ.
     Route: 065
  22. RISPERIDONE. [Concomitant]
     Active Substance: RISPERIDONE
     Indication: CATATONIA
     Dosage: UNK UNK, UNKNOWN FREQ
     Route: 065
  23. RISPERIDONE. [Concomitant]
     Active Substance: RISPERIDONE
     Indication: SCHIZOPHRENIA
     Dosage: UNK UNK, UNKNOWN FREQ
     Route: 048
  24. RISPERIDONE. [Concomitant]
     Active Substance: RISPERIDONE
     Indication: CATATONIA
     Dosage: UNK UNK, UNKNOWN FREQ
     Route: 065
  25. QUETIAPINE. [Suspect]
     Active Substance: QUETIAPINE
     Indication: SCHIZOPHRENIA
     Dosage: 25 MG/DAY, UNKNOWN FREQ.
     Route: 065
  26. LITHIUM CARBONATE. [Concomitant]
     Active Substance: LITHIUM CARBONATE
     Indication: SCHIZOPHRENIA
     Dosage: UNK UNK, UNKNOWN FREQ
     Route: 048
  27. SODIUM VALPROATE [Concomitant]
     Active Substance: VALPROATE SODIUM
     Indication: SCHIZOPHRENIA
     Dosage: UNK UNK, UNKNOWN FREQ.
     Route: 048
  28. PALIPERIDONE. [Concomitant]
     Active Substance: PALIPERIDONE
     Indication: SCHIZOPHRENIA
     Dosage: 12 MG/DAY, UNKNOWN FREQ.
     Route: 048
  29. RISPERIDONE. [Concomitant]
     Active Substance: RISPERIDONE
     Indication: CATATONIA
     Dosage: UNK UNK, UNKNOWN FREQ.
     Route: 065
  30. RISPERIDONE. [Concomitant]
     Active Substance: RISPERIDONE
     Indication: CATATONIA
     Dosage: UNK UNK, UNKNOWN FREQ.
     Route: 065
  31. RISPERIDONE. [Concomitant]
     Active Substance: RISPERIDONE
     Indication: CATATONIA
     Dosage: UNK UNK, UNKNOWN FREQ.
     Route: 065
  32. RISPERIDONE. [Concomitant]
     Active Substance: RISPERIDONE
     Indication: SCHIZOPHRENIA
     Dosage: UNK UNK, UNKNOWN FREQ
     Route: 065
  33. RISPERIDONE. [Concomitant]
     Active Substance: RISPERIDONE
     Indication: CATATONIA
     Dosage: UNK UNK, UNKNOWN FREQ
     Route: 048
  34. PALIPERIDONE. [Concomitant]
     Active Substance: PALIPERIDONE
     Indication: SCHIZOPHRENIA
     Dosage: UNK UNK, UNKNOWN FREQ
     Route: 048
  35. RISPERIDONE. [Concomitant]
     Active Substance: RISPERIDONE
     Indication: CATATONIA
     Route: 065
  36. RISPERIDONE. [Concomitant]
     Active Substance: RISPERIDONE
     Indication: CATATONIA
     Dosage: UNK UNK, UNKNOWN FREQ
     Route: 048
  37. RISPERIDONE. [Concomitant]
     Active Substance: RISPERIDONE
     Indication: CATATONIA
     Dosage: UNK UNK, UNKNOWN FREQ
     Route: 065

REACTIONS (9)
  - Cholecystitis [Unknown]
  - Pyrexia [Recovered/Resolved]
  - Catatonia [Unknown]
  - Self-induced vomiting [Unknown]
  - Blood creatine phosphokinase increased [Unknown]
  - Pneumonia [Unknown]
  - Dysphagia [Unknown]
  - Neuroleptic malignant syndrome [Recovering/Resolving]
  - Urinary tract infection [Unknown]
